FAERS Safety Report 4317759-4 (Version None)
Quarter: 2004Q1

REPORT INFORMATION
  Report Type: 
  Country: None (occurrence: None)
  Receive Date: 20040315
  Receipt Date: 20031112
  Transmission Date: 20041129
  Serious: Yes (Hospitalization)
  Sender: FDA-Public Use
  Company Number: WAES 0311FRA00041

PATIENT
  Age: 64 Year
  Sex: Male
  Weight: 70 kg

DRUGS (8)
  1. ASPIRIN [Concomitant]
     Route: 048
  2. CLOPIDOGREL BISULFATE [Concomitant]
     Indication: THROMBOSIS PROPHYLAXIS
     Route: 048
     Dates: start: 20030110, end: 20030828
  3. CLOPIDOGREL BISULFATE [Concomitant]
     Route: 048
     Dates: start: 20031001
  4. COZAAR [Suspect]
     Indication: HYPERTENSION
     Route: 048
     Dates: start: 19970101, end: 20030801
  5. COZAAR [Suspect]
     Route: 048
     Dates: start: 20031001
  6. PREDNISONE [Concomitant]
     Indication: MUSCLE DISORDER
     Route: 048
     Dates: start: 20021210
  7. SPIRONOLACTONE [Concomitant]
     Indication: HYPERTENSION
     Route: 048
     Dates: start: 20030124, end: 20030828
  8. SPIRONOLACTONE [Concomitant]
     Route: 048
     Dates: start: 20031001

REACTIONS (1)
  - CUTANEOUS LUPUS ERYTHEMATOSUS [None]
